FAERS Safety Report 20740969 (Version 1)
Quarter: 2022Q2

REPORT INFORMATION
  Report Type: Spontaneous
  Country: US (occurrence: US)
  Receive Date: 20220422
  Receipt Date: 20220422
  Transmission Date: 20220721
  Serious: No
  Sender: FDA-Public Use
  Company Number: US-LANNETT COMPANY, INC.-US-2021LAN000154

PATIENT

DRUGS (1)
  1. LEVOTHYROXINE SODIUM [Suspect]
     Active Substance: LEVOTHYROXINE SODIUM
     Indication: Product used for unknown indication
     Dosage: 88 ?G, UNK
     Route: 065

REACTIONS (5)
  - Malaise [Unknown]
  - Dizziness [Unknown]
  - Product odour abnormal [Unknown]
  - Nausea [Unknown]
  - Nervousness [Unknown]
